FAERS Safety Report 15215457 (Version 1)
Quarter: 2018Q3

REPORT INFORMATION
  Report Type: Spontaneous
  Country: JP (occurrence: JP)
  Receive Date: 20180730
  Receipt Date: 20180730
  Transmission Date: 20181010
  Serious: Yes (Other)
  Sender: FDA-Public Use
  Company Number: JP-BAYER-2018-137933

PATIENT
  Age: 82 Year
  Sex: Male

DRUGS (17)
  1. BENIDIPINE HYDROCHLORIDE [Concomitant]
     Active Substance: BENIDIPINE HYDROCHLORIDE
     Dosage: DAILY DOSE 8 MG
     Dates: start: 20170903, end: 20170905
  2. AZILSARTAN [Concomitant]
     Active Substance: AZILSARTAN KAMEDOXOMIL
     Dosage: DAILY DOSE 20 MG
     Dates: start: 20170907, end: 20170907
  3. ENALAPRIL MALEATE. [Concomitant]
     Active Substance: ENALAPRIL MALEATE
     Dosage: DAILY DOSE 10 MG
     Dates: start: 20170901, end: 20170906
  4. AZILSARTAN [Concomitant]
     Active Substance: AZILSARTAN KAMEDOXOMIL
     Dosage: DAILY DOSE 40 MG
     Dates: start: 20170909, end: 20180331
  5. DOXAZOSIN [Concomitant]
     Active Substance: DOXAZOSIN\DOXAZOSIN MESYLATE
     Dosage: DAILY DOSE 2 MG
     Dates: start: 20180118, end: 20180317
  6. DOXAZOSIN [Concomitant]
     Active Substance: DOXAZOSIN\DOXAZOSIN MESYLATE
     Dosage: DAILY DOSE 3 MG
     Dates: start: 20180318, end: 20180330
  7. AMLODIPINE [Concomitant]
     Active Substance: AMLODIPINE BESYLATE
     Dosage: DAILY DOSE 10 MG
     Dates: start: 20180411
  8. AZILSARTAN [Concomitant]
     Active Substance: AZILSARTAN KAMEDOXOMIL
     Dosage: DAILY DOSE 40 MG
     Dates: start: 20180413
  9. DOXAZOSIN [Concomitant]
     Active Substance: DOXAZOSIN\DOXAZOSIN MESYLATE
     Dosage: DAILY DOSE 1 MG
     Dates: start: 20180105, end: 20180117
  10. NEXAVAR [Suspect]
     Active Substance: SORAFENIB
     Indication: HEPATOCELLULAR CARCINOMA
     Dosage: DAILY DOSE 800 MG
     Route: 048
     Dates: start: 20170905, end: 20180209
  11. AMLODIPINE [Concomitant]
     Active Substance: AMLODIPINE BESYLATE
     Dosage: DAILY DOSE 5 MG
     Dates: start: 20170905, end: 20170910
  12. AMLODIPINE [Concomitant]
     Active Substance: AMLODIPINE BESYLATE
     Dosage: DAILY DOSE 5 MG
     Dates: start: 20180410, end: 20180410
  13. NEXAVAR [Suspect]
     Active Substance: SORAFENIB
     Indication: HEPATOCELLULAR CARCINOMA
     Dosage: 200 MG, BID
     Route: 048
     Dates: start: 20170901, end: 20170904
  14. AMLODIPINE [Concomitant]
     Active Substance: AMLODIPINE BESYLATE
     Dosage: DAILY DOSE 10 MG
     Dates: start: 20170911, end: 20180331
  15. AZILSARTAN [Concomitant]
     Active Substance: AZILSARTAN KAMEDOXOMIL
     Dosage: DAILY DOSE 30 MG
     Dates: start: 20170908, end: 20170908
  16. BENIDIPINE HYDROCHLORIDE [Concomitant]
     Active Substance: BENIDIPINE HYDROCHLORIDE
     Dosage: DAILY DOSE 4 MG
     Dates: start: 20170901, end: 20170902
  17. AZILSARTAN [Concomitant]
     Active Substance: AZILSARTAN KAMEDOXOMIL
     Dosage: DAILY DOSE 20 MG
     Dates: start: 20180401, end: 20180412

REACTIONS (2)
  - Hepatocellular carcinoma [None]
  - Hypertension [Recovered/Resolved]

NARRATIVE: CASE EVENT DATE: 20171204
